FAERS Safety Report 6005062-6 (Version None)
Quarter: 2008Q4

REPORT INFORMATION
  Report Type: 
  Country: None (occurrence: None)
  Receive Date: 20081216
  Receipt Date: 20081208
  Transmission Date: 20090506
  Serious: Yes (Hospitalization, Other)
  Sender: FDA-Public Use
  Company Number: PHHY2008BR31276

PATIENT
  Sex: Male
  Weight: 74 kg

DRUGS (5)
  1. EXELON [Suspect]
     Indication: DEMENTIA ALZHEIMER'S TYPE
     Dosage: 3 MG DAILY
     Route: 048
     Dates: start: 20070101
  2. EXELON [Suspect]
     Dosage: 4.5 MG DAILY
     Route: 048
     Dates: end: 20070101
  3. PURAN T4 [Concomitant]
     Indication: HYPERTHYROIDISM
     Dosage: 1 TABLET/DAY
     Route: 048
  4. MODURETIC 5-50 [Concomitant]
     Indication: HYPERTENSION
     Dosage: 1 TABLET/DAY
     Route: 048
  5. MOTILIUM [Concomitant]
     Dosage: 30 MINS BEFORE LUCH AND DINNER
     Route: 048

REACTIONS (6)
  - ABDOMINAL PAIN [None]
  - CHOLELITHIASIS [None]
  - GALLBLADDER OPERATION [None]
  - GASTRITIS [None]
  - GASTROINTESTINAL ULCER [None]
  - HYPERSENSITIVITY [None]
